FAERS Safety Report 4464566-8 (Version None)
Quarter: 2004Q3

REPORT INFORMATION
  Report Type: 
  Country: None (occurrence: None)
  Receive Date: 20040929
  Receipt Date: 20040914
  Transmission Date: 20050211
  Serious: Yes (Hospitalization, Disabling)
  Sender: FDA-Public Use
  Company Number: BRO-007728

PATIENT
  Age: 59 Year
  Sex: Female

DRUGS (7)
  1. IOPAMIDOL-300 [Suspect]
     Indication: ARTHROGRAM
     Dosage: 0.5 ML, IR
     Dates: start: 20040804, end: 20040804
  2. IOPAMIDOL-300 [Suspect]
     Indication: CRANIAL NEUROPATHY
     Dosage: 0.5 ML, IR
     Dates: start: 20040804, end: 20040804
  3. XYLOCAINE HYDROCHLORIDE (LIDOCAINE HYDROCHLORIDE) [Concomitant]
  4. HYDROCORTANCYL (PREDNISOLONE) [Concomitant]
  5. MIGPRIV [Concomitant]
  6. DOLIPRANE (PARACETAMOL) [Concomitant]
  7. VIDORA (INDORAMIN) [Concomitant]

REACTIONS (12)
  - DYSAESTHESIA [None]
  - DYSPNOEA [None]
  - HYPOTENSION [None]
  - IMMUNE SYSTEM DISORDER [None]
  - IMMUNOGLOBULINS INCREASED [None]
  - MYELITIS [None]
  - NAUSEA [None]
  - NERVOUS SYSTEM DISORDER [None]
  - QUADRIPLEGIA [None]
  - SPINAL CORD OEDEMA [None]
  - SYNCOPE VASOVAGAL [None]
  - TRANSAMINASES INCREASED [None]
